FAERS Safety Report 5120130-9 (Version None)
Quarter: 2006Q4

REPORT INFORMATION
  Report Type: 
  Country: None (occurrence: None)
  Receive Date: 20061002
  Receipt Date: 20061002
  Transmission Date: 20070319
  Serious: Yes (Hospitalization)
  Sender: FDA-Public Use
  Company Number: None

PATIENT
  Age: 33 Year

DRUGS (1)
  1. NEURONTIN [Suspect]
     Indication: FIBROMYALGIA
     Dosage: 600 MG/600 MG/300 MG AS DIRECTED PO
     Route: 048
     Dates: start: 20060214, end: 20060302

REACTIONS (4)
  - EMOTIONAL DISORDER [None]
  - IRRITABILITY [None]
  - SUICIDAL IDEATION [None]
  - VERBAL ABUSE [None]
